FAERS Safety Report 18868660 (Version 7)
Quarter: 2021Q3

REPORT INFORMATION
  Report Type: Report from Study
  Country: US (occurrence: US)
  Receive Date: 20210209
  Receipt Date: 20210720
  Transmission Date: 20211014
  Serious: Yes (Other)
  Sender: FDA-Public Use
  Company Number: NVSC2021US023089

PATIENT
  Sex: Female

DRUGS (2)
  1. MAYZENT [Suspect]
     Active Substance: SIPONIMOD
     Indication: MULTIPLE SCLEROSIS
     Dosage: 1 MG/KG, QD
     Route: 048
     Dates: start: 20210129
  2. MAYZENT [Suspect]
     Active Substance: SIPONIMOD
     Dosage: 2 MG, QD
     Route: 048

REACTIONS (10)
  - Spinal pain [Unknown]
  - Incontinence [Unknown]
  - Palpitations [Recovered/Resolved]
  - Muscle spasticity [Unknown]
  - Muscle rigidity [Unknown]
  - Ligament sprain [Unknown]
  - Spinal fracture [Unknown]
  - Scoliosis [Recovering/Resolving]
  - Muscle tightness [Unknown]
  - Migraine [Unknown]
